FAERS Safety Report 22129304 (Version 2)
Quarter: 2023Q1

REPORT INFORMATION
  Report Type: Other
  Country: PK (occurrence: None)
  Receive Date: 20230323
  Receipt Date: 20230330
  Transmission Date: 20230417
  Serious: Yes (Death)
  Sender: FDA-Public Use
  Company Number: PK-ROCHE-3315674

PATIENT
  Age: 44 Year
  Sex: Male

DRUGS (1)
  1. MABTHERA [Suspect]
     Active Substance: RITUXIMAB
     Indication: Follicular lymphoma
     Route: 058
     Dates: start: 20220428

REACTIONS (1)
  - Death [Fatal]

NARRATIVE: CASE EVENT DATE: 20221201
